FAERS Safety Report 5756952-0 (Version None)
Quarter: 2008Q2

REPORT INFORMATION
  Report Type: 
  Country: None (occurrence: None)
  Receive Date: 20080529
  Receipt Date: 20080522
  Transmission Date: 20081010
  Serious: Yes (Other)
  Sender: FDA-Public Use
  Company Number: 2008SP009795

PATIENT
  Sex: Male

DRUGS (1)
  1. INTERFERON (MANUFACTURER UNKNOWN) [Suspect]
     Indication: HEPATITIS C

REACTIONS (2)
  - PHYSICAL ASSAULT [None]
  - SUICIDE ATTEMPT [None]
